FAERS Safety Report 5792295-7 (Version None)
Quarter: 2008Q2

REPORT INFORMATION
  Report Type: 
  Country: None (occurrence: None)
  Receive Date: 20080626
  Receipt Date: 20080221
  Transmission Date: 20081010
  Serious: No
  Sender: FDA-Public Use
  Company Number: US-ASTRAZENECA-2008UW03704

PATIENT
  Age: 84 Year
  Sex: Female

DRUGS (2)
  1. PULMICORT-100 [Suspect]
     Indication: ASTHMA
     Dosage: 0.25/2ML BID AT 12 AM AND NOON
     Route: 055
     Dates: start: 20071201
  2. DUONEB [Concomitant]

REACTIONS (5)
  - CATARACT [None]
  - COUGH [None]
  - DRY MOUTH [None]
  - EYE DISORDER [None]
  - ILL-DEFINED DISORDER [None]
